FAERS Safety Report 6342422-8 (Version None)
Quarter: 2009Q3

REPORT INFORMATION
  Report Type: 
  Country: None (occurrence: None)
  Receive Date: 20090908
  Receipt Date: 20011113
  Transmission Date: 20100115
  Serious: No
  Sender: FDA-Public Use
  Company Number: US-ROCHE-255883

PATIENT
  Sex: Male
  Weight: 3.4 kg

DRUGS (2)
  1. TAMIFLU [Suspect]
     Dates: start: 20010206, end: 20010209
  2. ORTHO TRI-CYCLEN [Concomitant]
     Dosage: DAILY.
     Dates: start: 19991201, end: 20010101

REACTIONS (1)
  - DRUG EXPOSURE DURING PREGNANCY [None]
